FAERS Safety Report 5671157-X (Version None)
Quarter: 2008Q1

REPORT INFORMATION
  Report Type: 
  Country: None (occurrence: None)
  Receive Date: 20080318
  Receipt Date: 20080304
  Transmission Date: 20080703
  Serious: Yes (Hospitalization)
  Sender: FDA-Public Use
  Company Number: US-ELI_LILLY_AND_COMPANY-US200803000674

PATIENT
  Sex: Female

DRUGS (14)
  1. FORTEO [Suspect]
     Dates: start: 20070604
  2. THEO-24 [Concomitant]
     Dosage: 200 MG, UNK
  3. ATIVAN [Concomitant]
     Dosage: 0.5 MG, 4/D
  4. NEXIUM [Concomitant]
     Dosage: 40 MG, UNK
  5. METHADON HCL TAB [Concomitant]
     Dosage: 15 MG, UNK
  6. SPIRONOLACTONE [Concomitant]
     Dosage: 12.5 MG, DAILY (1/D)
     Route: 048
  7. PREDNISONE [Concomitant]
  8. ASPIRIN [Concomitant]
     Dosage: 80 MG, DAILY (1/D)
  9. ZOLPIDEM [Concomitant]
     Dosage: 10 MG, UNK
  10. BENICAR HCT [Concomitant]
     Dosage: UNK, EACH EVENING
  11. LYRICA [Concomitant]
  12. MUCINEX [Concomitant]
     Dosage: 600 MG, UNK
  13. GUAIFENESIN LA [Concomitant]
  14. SINGULAIR [Concomitant]
     Dosage: 10 MG, DAILY (1/D)
     Route: 048

REACTIONS (2)
  - BRONCHITIS [None]
  - CHRONIC OBSTRUCTIVE PULMONARY DISEASE [None]
